FAERS Safety Report 15453329 (Version 1)
Quarter: 2018Q4

REPORT INFORMATION
  Report Type: Spontaneous
  Country: NL (occurrence: NL)
  Receive Date: 20181001
  Receipt Date: 20181001
  Transmission Date: 20190204
  Serious: Yes (Hospitalization, Other)
  Sender: FDA-Public Use
  Company Number: NL-TERSERA THERAPEUTICS LLC-TSR2018001515

PATIENT

DRUGS (10)
  1. ZOLADEX [Suspect]
     Active Substance: GOSERELIN ACETATE
     Dosage: 1.00 X PER 3 MONTHS
     Route: 058
     Dates: start: 20180313
  2. DICLOFENAC [Concomitant]
     Active Substance: DICLOFENAC
     Indication: PRODUCT USED FOR UNKNOWN INDICATION
     Dosage: 100 MG X 3
     Route: 065
  3. PARACETAMOL [Concomitant]
     Active Substance: ACETAMINOPHEN
     Indication: PRODUCT USED FOR UNKNOWN INDICATION
     Dosage: 1000 MG X 3
     Route: 065
  4. CALCIUM [Concomitant]
     Active Substance: CALCIUM
     Indication: PRODUCT USED FOR UNKNOWN INDICATION
     Dosage: 500 MG X 1
     Route: 065
  5. ZOLADEX [Suspect]
     Active Substance: GOSERELIN ACETATE
     Dosage: 1.00 X PER 3 MONTHS
     Route: 058
     Dates: start: 20180612
  6. ZOLADEX [Suspect]
     Active Substance: GOSERELIN ACETATE
     Dosage: 1.00 X PER 3 MONTHS
     Route: 058
     Dates: start: 20150203
  7. ZOLADEX [Suspect]
     Active Substance: GOSERELIN ACETATE
     Indication: PROSTATE CANCER
     Dosage: 1.00 X PER 3 MONTHS
     Route: 058
     Dates: start: 20150122
  8. ENZALUTAMIDE [Suspect]
     Active Substance: ENZALUTAMIDE
     Indication: PRODUCT USED FOR UNKNOWN INDICATION
     Dosage: UNK
     Route: 065
     Dates: start: 20150909
  9. BUPRENORPHINE. [Concomitant]
     Active Substance: BUPRENORPHINE
     Indication: PRODUCT USED FOR UNKNOWN INDICATION
     Dosage: 50 MG X 3X PER WEEK
     Route: 065
  10. DOCETAXEL. [Concomitant]
     Active Substance: DOCETAXEL
     Indication: PRODUCT USED FOR UNKNOWN INDICATION
     Dosage: UNK
     Route: 065
     Dates: start: 20171115

REACTIONS (3)
  - Pathological fracture [Recovering/Resolving]
  - Malignant neoplasm progression [Unknown]
  - Metastases to bone [Unknown]

NARRATIVE: CASE EVENT DATE: 20180318
